FAERS Safety Report 5779526-4 (Version None)
Quarter: 2008Q2

REPORT INFORMATION
  Report Type: 
  Country: None (occurrence: None)
  Receive Date: 20080619
  Receipt Date: 20070810
  Transmission Date: 20081010
  Serious: No
  Sender: FDA-Public Use
  Company Number: US-ASTRAZENECA-2007UW17770

PATIENT
  Age: 16758 Day
  Sex: Female
  Weight: 73.2 kg

DRUGS (3)
  1. ATACAND [Suspect]
     Indication: HYPERTENSION
     Route: 048
     Dates: start: 20070711, end: 20070723
  2. SYNTHROID [Concomitant]
  3. OVCON-35 [Concomitant]

REACTIONS (1)
  - JOINT SWELLING [None]
